FAERS Safety Report 9780170 (Version 1)
Quarter: 2013Q4

REPORT INFORMATION
  Report Type: Spontaneous
  Country: IT (occurrence: IT)
  Receive Date: 20131223
  Receipt Date: 20131223
  Transmission Date: 20140711
  Serious: Yes (Death, Other)
  Sender: FDA-Public Use
  Company Number: PHHY2013IT149494

PATIENT
  Age: 18 Year
  Sex: Male

DRUGS (6)
  1. IMATINIB [Suspect]
     Indication: ACUTE LYMPHOCYTIC LEUKAEMIA
  2. IMATINIB [Suspect]
     Dosage: 400 MG, BID
  3. DASATINIB [Suspect]
     Dosage: 70 MG, BID
  4. NILOTINIB [Suspect]
     Dosage: 400 MG, BID
  5. METHOTREXATE [Concomitant]
  6. CYCLOPHOSPHAMIDE [Concomitant]

REACTIONS (3)
  - Death [Fatal]
  - Acute lymphocytic leukaemia recurrent [Unknown]
  - Diarrhoea [Unknown]
